FAERS Safety Report 12300812 (Version 2)
Quarter: 2016Q4

REPORT INFORMATION
  Report Type: Report from Study
  Country: IE (occurrence: IE)
  Receive Date: 20160425
  Receipt Date: 20161227
  Transmission Date: 20170207
  Serious: Yes (Death, Hospitalization)
  Sender: FDA-Public Use
  Company Number: IE-VERTEX PHARMACEUTICALS-2016-002600

PATIENT
  Sex: Male

DRUGS (15)
  1. MORPHINE [Concomitant]
     Active Substance: MORPHINE
     Route: 058
  2. DEOXYRIBONUCLEASE HUMAN [Concomitant]
  3. PANTOPRAZOLE [Concomitant]
     Active Substance: PANTOPRAZOLE SODIUM
  4. TEICOPLANIN [Concomitant]
     Active Substance: TEICOPLANIN
  5. HYOSCINE [Concomitant]
     Active Substance: SCOPOLAMINE
     Route: 058
  6. INSULIN [Concomitant]
     Active Substance: INSULIN NOS
  7. HYDROCORTISONE. [Concomitant]
     Active Substance: HYDROCORTISONE
  8. ORKAMBI [Suspect]
     Active Substance: IVACAFTOR\LUMACAFTOR
     Indication: CYSTIC FIBROSIS
     Dosage: 2 DF, BID
     Route: 048
     Dates: start: 20160303
  9. AMLODIPINE [Concomitant]
     Active Substance: AMLODIPINE BESYLATE
  10. COLOMYCIN [Concomitant]
     Active Substance: COLISTIN
     Route: 055
  11. MIDAZOLAM [Concomitant]
     Active Substance: MIDAZOLAM\MIDAZOLAM HYDROCHLORIDE
     Route: 058
  12. SALBUTEROL [Concomitant]
  13. AZITHROMYCIN ANHYDROUS. [Concomitant]
     Active Substance: AZITHROMYCIN ANHYDROUS
  14. COLOMYCIN [Concomitant]
     Active Substance: COLISTIN
     Route: 042
  15. MEROPENEM. [Concomitant]
     Active Substance: MEROPENEM

REACTIONS (2)
  - Acute respiratory failure [Fatal]
  - Infective pulmonary exacerbation of cystic fibrosis [Unknown]

NARRATIVE: CASE EVENT DATE: 2016
